FAERS Safety Report 8045224-X (Version None)
Quarter: 2012Q1

REPORT INFORMATION
  Report Type: 
  Country: None (occurrence: None)
  Receive Date: 20120113
  Receipt Date: 20120110
  Transmission Date: 20120608
  Serious: Yes (Hospitalization, Other)
  Sender: FDA-Public Use
  Company Number: SE-PFIZER INC-2011291766

PATIENT
  Age: 46 Year
  Sex: Female
  Weight: 106 kg

DRUGS (9)
  1. HYDROCORTONE [Concomitant]
     Indication: BLOOD CORTISOL DECREASED
     Dosage: 25 MG, DAILY (DIVIDED IN 4 DOSES)
     Dates: start: 19630101
  2. LOSARTAN [Concomitant]
     Indication: HYPERTENSION
     Dosage: 50 MG TABLET, 1X/DAY
     Route: 048
     Dates: start: 20070101
  3. FEMANOR [Concomitant]
     Indication: OESTROGEN REPLACEMENT THERAPY
     Dosage: UNK, TABLET
     Route: 048
     Dates: start: 20050101
  4. LEVOTHYROXINE [Concomitant]
     Indication: THYROID DISORDER
     Dosage: 150 UG TABLET, UNK
     Route: 048
     Dates: start: 19630101
  5. DESMOPRESSIN ACETATE [Concomitant]
     Indication: BLOOD ANTIDIURETIC HORMONE DECREASED
     Dosage: 120 UG TABLET, 1X/DAY
     Route: 048
     Dates: start: 19630101
  6. ACETYLSALICYLIC ACID SRT [Suspect]
     Indication: HEADACHE
     Dosage: 4000 MG, UNK
  7. LEVETIRACETAM [Concomitant]
     Indication: EPILEPSY
     Dosage: 2000 MG, 1X/DAY
     Route: 048
     Dates: start: 20100401
  8. SOMATROPIN [Suspect]
     Indication: GROWTH HORMONE DEFICIENCY
     Dosage: 0.2 MG, 1XDAY
     Route: 058
     Dates: start: 19920101
  9. PRASTERONE [Concomitant]
     Indication: ANDROGEN DEFICIENCY
     Dosage: 25 MG, 1X/DAY
     Route: 048
     Dates: start: 20060101

REACTIONS (1)
  - EPILEPSY [None]
